FAERS Safety Report 15537224 (Version 2)
Quarter: 2018Q4

REPORT INFORMATION
  Report Type: Spontaneous
  Country: RO (occurrence: RO)
  Receive Date: 20181022
  Receipt Date: 20181102
  Transmission Date: 20190205
  Serious: Yes (Hospitalization, Other)
  Sender: FDA-Public Use
  Company Number: RO-PFIZER INC-2018427216

PATIENT
  Age: 62 Year
  Sex: Female

DRUGS (5)
  1. COLCHICINA [Concomitant]
     Active Substance: COLCHICINE
     Indication: ARTHROPATHY
     Dosage: 1 MG, 1/2, 1X/DAY
     Route: 048
     Dates: start: 2015
  2. FOSAVANCE [Concomitant]
     Active Substance: ALENDRONATE SODIUM\CHOLECALCIFEROL
     Indication: OSTEOPOROSIS
     Dosage: 70/5600, 1X/WEEK
     Route: 048
     Dates: start: 2016
  3. VITAMIN B12 [Concomitant]
     Active Substance: CYANOCOBALAMIN
     Indication: PERNICIOUS ANAEMIA
     Dosage: 100, MONTHLY
     Route: 030
     Dates: start: 201801
  4. CALCIUM LACTICUM [Concomitant]
     Indication: OSTEOPOROSIS
     Dosage: 500 G, DAILY
     Route: 048
     Dates: start: 2016
  5. XELJANZ [Suspect]
     Active Substance: TOFACITINIB CITRATE
     Indication: RHEUMATOID ARTHRITIS
     Dosage: 5 MG, 2X/DAY
     Route: 048
     Dates: start: 201804, end: 20180928

REACTIONS (3)
  - Fall [Recovered/Resolved]
  - Spinal compression fracture [Recovered/Resolved]
  - Spinal column injury [Recovered/Resolved]

NARRATIVE: CASE EVENT DATE: 20180928
